FAERS Safety Report 23877321 (Version 1)
Quarter: 2024Q2

REPORT INFORMATION
  Report Type: Spontaneous
  Country: US (occurrence: US)
  Receive Date: 20240521
  Receipt Date: 20240521
  Transmission Date: 20240716
  Serious: Yes (Hospitalization, Other)
  Sender: FDA-Public Use
  Company Number: US-ABBVIE-5763792

PATIENT

DRUGS (1)
  1. HUMIRA [Suspect]
     Active Substance: ADALIMUMAB
     Indication: Psoriasis
     Route: 058
     Dates: start: 2004, end: 2024

REACTIONS (8)
  - Histamine intolerance [Unknown]
  - Anaphylactic shock [Unknown]
  - Hypotension [Unknown]
  - Histamine intolerance [Recovered/Resolved]
  - General symptom [Unknown]
  - Loss of consciousness [Unknown]
  - Dehydration [Unknown]
  - Diarrhoea [Unknown]

NARRATIVE: CASE EVENT DATE: 20210101
